FAERS Safety Report 13731568 (Version 1)
Quarter: 2017Q3

REPORT INFORMATION
  Report Type: Report from Study
  Country: US (occurrence: US)
  Receive Date: 20170707
  Receipt Date: 20170707
  Transmission Date: 20171127
  Serious: Yes (Hospitalization, Other)
  Sender: FDA-Public Use
  Company Number: US-GILEAD-2017-0281713

PATIENT
  Age: 62 Year
  Sex: Male

DRUGS (2)
  1. RANOLAZINE. [Suspect]
     Active Substance: RANOLAZINE
     Dosage: 1000 MG, QD
     Route: 048
     Dates: start: 2017
  2. RANOLAZINE. [Suspect]
     Active Substance: RANOLAZINE
     Indication: ANGINA PECTORIS
     Dosage: 1000 MG, BID
     Route: 048
     Dates: start: 20150701

REACTIONS (9)
  - Angioplasty [Unknown]
  - Catheterisation cardiac [Unknown]
  - Catheterisation cardiac [Unknown]
  - Arterial rupture [Unknown]
  - Muscle spasms [Unknown]
  - Fluid retention [Not Recovered/Not Resolved]
  - Intentional product misuse [Not Recovered/Not Resolved]
  - Surgery [Unknown]
  - Procedural complication [Unknown]

NARRATIVE: CASE EVENT DATE: 201508
